FAERS Safety Report 9499033 (Version 3)
Quarter: 2013Q3

REPORT INFORMATION
  Report Type: Spontaneous
  Country: US (occurrence: US)
  Receive Date: 20130904
  Receipt Date: 20130913
  Transmission Date: 20140515
  Serious: Yes (Hospitalization)
  Sender: FDA-Public Use
  Company Number: US-009507513-1306USA000631

PATIENT
  Age: 51 Year
  Sex: Female
  Weight: 54.42 kg

DRUGS (10)
  1. MIRALAX [Suspect]
     Indication: CONSTIPATION
     Dosage: 17 G, QPM
     Route: 048
     Dates: end: 2013
  2. LEVOTHYROXINE SODIUM [Concomitant]
     Indication: HYPOTHYROIDISM
     Dosage: 50 MICROGRAM, QD
     Route: 048
  3. ZOLOFT [Concomitant]
     Indication: DEPRESSION
     Dosage: 200 MG, HS
     Route: 048
  4. ULTRAM [Concomitant]
     Indication: MYELOPATHY
     Dosage: 50 MG, UNK
  5. TRAZODONE HYDROCHLORIDE [Concomitant]
     Indication: INSOMNIA
     Dosage: 100 MG, PRN
     Route: 048
  6. LORAZEPAM [Concomitant]
     Dosage: 0.5 MG, UNK
  7. ZOFRAN [Concomitant]
     Dosage: 4 MG, UNK
  8. CIPRO [Concomitant]
     Indication: URINARY TRACT INFECTION
     Dosage: 500 MG, BID
  9. GASTROINTESTINAL PREPARATIONS (UNSPECIFIED) [Concomitant]
     Dosage: UNK
  10. IBUPROFEN [Concomitant]
     Indication: BACK PAIN
     Dosage: 800 MG, UNK

REACTIONS (21)
  - Hospitalisation [Unknown]
  - Gastritis [Not Recovered/Not Resolved]
  - Haematochezia [Unknown]
  - Abdominal pain [Not Recovered/Not Resolved]
  - Incorrect drug administration duration [Unknown]
  - Back pain [Recovering/Resolving]
  - Pain in jaw [Not Recovered/Not Resolved]
  - Gastrointestinal infection [Not Recovered/Not Resolved]
  - Diarrhoea [Recovering/Resolving]
  - Decreased appetite [Not Recovered/Not Resolved]
  - Osteoarthritis [Not Recovered/Not Resolved]
  - Melaena [Not Recovered/Not Resolved]
  - Dizziness [Not Recovered/Not Resolved]
  - Headache [Not Recovered/Not Resolved]
  - Nausea [Not Recovered/Not Resolved]
  - Eructation [Not Recovered/Not Resolved]
  - Dyspnoea [Not Recovered/Not Resolved]
  - Cough [Not Recovered/Not Resolved]
  - Flatulence [Not Recovered/Not Resolved]
  - Musculoskeletal stiffness [Not Recovered/Not Resolved]
  - Hot flush [Not Recovered/Not Resolved]
